FAERS Safety Report 6960582-2 (Version None)
Quarter: 2010Q3

REPORT INFORMATION
  Report Type: 
  Country: None (occurrence: None)
  Receive Date: 20100901
  Receipt Date: 20100824
  Transmission Date: 20110219
  Serious: Yes (Hospitalization)
  Sender: FDA-Public Use
  Company Number: DK-PFIZER INC-2009275922

PATIENT
  Age: 67 Year
  Sex: Male
  Weight: 90 kg

DRUGS (3)
  1. CELECOXIB [Suspect]
     Indication: OSTEOARTHRITIS
     Dosage: 100 MG, 2X/DAY
     Route: 048
     Dates: start: 20090109
  2. OMEPRAZOLE [Concomitant]
     Dosage: 40 MG, 2X/DAY
  3. CORODIL COMP [Concomitant]
     Dosage: 20 + 12.5 MG TABL. DAILY

REACTIONS (1)
  - ARRHYTHMIA [None]
